FAERS Safety Report 5225272-5 (Version None)
Quarter: 2007Q1

REPORT INFORMATION
  Report Type: 
  Country: None (occurrence: None)
  Receive Date: 20070131
  Receipt Date: 20070120
  Transmission Date: 20070707
  Serious: Yes (Hospitalization)
  Sender: FDA-Public Use
  Company Number: PHBS2006FI19577

PATIENT
  Age: 45 Year
  Sex: Male

DRUGS (9)
  1. LEPONEX [Suspect]
     Indication: SCHIZOPHRENIA
     Dosage: 200 MG/D
     Route: 048
     Dates: start: 20060101, end: 20061101
  2. ABSENOR [Suspect]
     Dosage: 1800 MG/DAY
  3. RISPERDAL [Concomitant]
     Dosage: 3 MG/D
  4. SEROQUEL [Suspect]
     Dosage: 150 MG/D
     Dates: end: 20061124
  5. METFORMIN HYDROCHLORIDE [Concomitant]
     Dosage: 2 G/D
     Dates: end: 20061124
  6. AMARYL [Concomitant]
     Dosage: 1 MG/D
  7. PRAVACHOL [Concomitant]
     Dosage: 40 MG/D
  8. PRIMASPAN [Concomitant]
     Dosage: 100 MG/D
  9. MELPAX [Concomitant]
     Dosage: 20 MG/D

REACTIONS (14)
  - ALANINE AMINOTRANSFERASE INCREASED [None]
  - ASPARTATE AMINOTRANSFERASE INCREASED [None]
  - BLOOD ALKALINE PHOSPHATASE INCREASED [None]
  - C-REACTIVE PROTEIN INCREASED [None]
  - EOSINOPHILIA [None]
  - GAMMA-GLUTAMYLTRANSFERASE INCREASED [None]
  - GENERAL PHYSICAL HEALTH DETERIORATION [None]
  - HEPATIC ENZYME INCREASED [None]
  - HEPATOCELLULAR DAMAGE [None]
  - HYPERGLYCAEMIA [None]
  - MONOCYTE COUNT INCREASED [None]
  - PLATELET COUNT INCREASED [None]
  - PYREXIA [None]
  - WHITE BLOOD CELL COUNT INCREASED [None]
